FAERS Safety Report 7276709-1 (Version None)
Quarter: 2011Q1

REPORT INFORMATION
  Report Type: 
  Country: None (occurrence: None)
  Receive Date: 20110204
  Receipt Date: 20110202
  Transmission Date: 20110831
  Serious: Yes (Other)
  Sender: FDA-Public Use
  Company Number: ES-PFIZER INC-2011024901

PATIENT
  Age: 63 Year
  Sex: Female

DRUGS (2)
  1. PIPERACILLIN AND TAZOBACTAM [Suspect]
     Dosage: 1500 MG/DAY
     Route: 042
  2. PHENYTOIN SODIUM [Suspect]
     Dosage: 300 MG/DAY

REACTIONS (1)
  - STATUS EPILEPTICUS [None]
